FAERS Safety Report 11569351 (Version 1)
Quarter: 2015Q3

REPORT INFORMATION
  Report Type: Spontaneous
  Country: US (occurrence: None)
  Receive Date: 20150928
  Receipt Date: 20150928
  Transmission Date: 20151125
  Serious: Yes (Life-Threatening, Disabling, Other)
  Sender: FDA-Public Use
  Company Number: None

PATIENT
  Age: 52 Year
  Sex: Female
  Weight: 65.77 kg

DRUGS (1)
  1. DAYTRANA [Suspect]
     Active Substance: METHYLPHENIDATE
     Indication: ATTENTION DEFICIT/HYPERACTIVITY DISORDER
     Dosage: 1 PATCH, ALTERNATE HIPS, APPLIED AS MEDICATED PATCH TO SKIN
     Route: 061
     Dates: start: 20121008, end: 20121208

REACTIONS (15)
  - Hostility [None]
  - Amnesia [None]
  - Psychogenic seizure [None]
  - Delusion [None]
  - Paranoia [None]
  - Logorrhoea [None]
  - Fear [None]
  - Palpitations [None]
  - Dehydration [None]
  - Memory impairment [None]
  - Altered state of consciousness [None]
  - Insomnia [None]
  - Psychotic disorder [None]
  - Mania [None]
  - Anxiety [None]

NARRATIVE: CASE EVENT DATE: 20130307
